FAERS Safety Report 16748410 (Version 3)
Quarter: 2019Q4

REPORT INFORMATION
  Report Type: Spontaneous
  Country: RO (occurrence: RO)
  Receive Date: 20190828
  Receipt Date: 20191024
  Transmission Date: 20200122
  Serious: Yes (Hospitalization)
  Sender: FDA-Public Use
  Company Number: RO-ROCHE-2390945

PATIENT
  Age: 16 Year
  Sex: Female
  Weight: 65 kg

DRUGS (4)
  1. XOLAIR [Suspect]
     Active Substance: OMALIZUMAB
     Indication: ASTHMA
     Route: 065
     Dates: start: 201809
  2. FLUTICASONE PROPIONATE. [Concomitant]
     Active Substance: FLUTICASONE PROPIONATE
     Indication: ASTHMA
     Dosage: 500 UG, BID (1 PUFF TWICE DAILY)
     Route: 065
  3. XOLAIR [Suspect]
     Active Substance: OMALIZUMAB
     Dosage: 225 MG, BIW
     Route: 065
  4. MONTELUKAST [Concomitant]
     Active Substance: MONTELUKAST SODIUM
     Indication: ASTHMA
     Dosage: 10 MG, QD
     Route: 065

REACTIONS (13)
  - Wheezing [Recovering/Resolving]
  - Blood immunoglobulin E increased [Recovering/Resolving]
  - Lymphopenia [Recovering/Resolving]
  - Pneumonia streptococcal [Recovering/Resolving]
  - Hypochromic anaemia [Recovering/Resolving]
  - Dyspnoea [Recovering/Resolving]
  - Altered state of consciousness [Recovering/Resolving]
  - Obstructive airways disorder [Recovered/Resolved]
  - Neutrophilia [Recovering/Resolving]
  - Streptococcal infection [Recovered/Resolved]
  - Pulmonary tuberculosis [Recovered/Resolved]
  - Drug ineffective [Unknown]
  - Cough [Recovering/Resolving]
